FAERS Safety Report 4906114-1 (Version None)
Quarter: 2006Q2

REPORT INFORMATION
  Report Type: 
  Country: None (occurrence: None)
  Receive Date: 20060207
  Receipt Date: 20060207
  Transmission Date: 20061013
  Serious: No
  Sender: FDA-Public Use
  Company Number: None

PATIENT
  Age: 38 Year
  Sex: Female
  Weight: 69.8539 kg

DRUGS (2)
  1. ZMAX [Suspect]
     Indication: SINUSITIS
     Dosage: 1 BOTTLE 1 TIME PO
     Route: 048
     Dates: start: 20060203, end: 20060203
  2. NASONEX [Concomitant]

REACTIONS (2)
  - ABDOMINAL PAIN UPPER [None]
  - DIARRHOEA [None]
